FAERS Safety Report 18282134 (Version 2)
Quarter: 2020Q3

REPORT INFORMATION
  Report Type: Report from Study
  Country: JP (occurrence: JP)
  Receive Date: 20200918
  Receipt Date: 20200929
  Transmission Date: 20201103
  Serious: Yes (Other)
  Sender: FDA-Public Use
  Company Number: JP-ELI_LILLY_AND_COMPANY-JP202008000122AA

PATIENT
  Age: 60 Year
  Sex: Female
  Weight: 40 kg

DRUGS (4)
  1. BIOFERMIN [BACILLUS SUBTILIS;ENTEROCOCCUS FAE [Concomitant]
     Dosage: UNK, TID
     Route: 065
     Dates: start: 20200401, end: 20200415
  2. ABEMACICLIB [Suspect]
     Active Substance: ABEMACICLIB
     Indication: BREAST CANCER
     Dosage: 150 MG, BID
     Route: 048
     Dates: start: 20200401, end: 20200415
  3. CEREKINON [Concomitant]
     Active Substance: TRIMEBUTINE
     Dosage: UNK UNK, TID
     Route: 065
     Dates: start: 20200414, end: 20200415
  4. FASLODEX [Concomitant]
     Active Substance: FULVESTRANT
     Dosage: UNK
     Route: 065
     Dates: start: 20200303

REACTIONS (1)
  - Hepatic function abnormal [Recovering/Resolving]

NARRATIVE: CASE EVENT DATE: 20200414
